FAERS Safety Report 9857042 (Version 2)
Quarter: 2014Q1

REPORT INFORMATION
  Report Type: Spontaneous
  Country: US (occurrence: US)
  Receive Date: 20140130
  Receipt Date: 20140225
  Transmission Date: 20141002
  Serious: Yes (Other)
  Sender: FDA-Public Use
  Company Number: US-PFIZER INC-2014028445

PATIENT
  Age: 44 Year
  Sex: Female
  Weight: 72.56 kg

DRUGS (1)
  1. LYRICA [Suspect]
     Indication: NEUROPATHY PERIPHERAL
     Dosage: 75 MG, 4X/DAY
     Dates: start: 2009

REACTIONS (4)
  - Fall [Unknown]
  - Face injury [Unknown]
  - Alcohol interaction [Unknown]
  - Vision blurred [Not Recovered/Not Resolved]
